FAERS Safety Report 12977786 (Version 2)
Quarter: 2016Q4

REPORT INFORMATION
  Report Type: Report from Study
  Country: US (occurrence: US)
  Receive Date: 20161128
  Receipt Date: 20161208
  Transmission Date: 20170207
  Serious: Yes (Other)
  Sender: FDA-Public Use
  Company Number: PHHO2014US019882

PATIENT
  Age: 54 Year
  Sex: Male
  Weight: 79.5 kg

DRUGS (5)
  1. LIDOCAINE-EPINEPHRINE [Concomitant]
     Active Substance: EPINEPHRINE\LIDOCAINE
     Indication: PRODUCT USED FOR UNKNOWN INDICATION
     Dosage: 1 %, ONCE/SINGLE
     Route: 042
     Dates: start: 20140715, end: 20140715
  2. ANCEF [Concomitant]
     Active Substance: CEFAZOLIN SODIUM
     Indication: PRODUCT USED FOR UNKNOWN INDICATION
     Dosage: 2 G, ONCE/SINGLE
     Route: 042
     Dates: start: 20140715, end: 20140715
  3. DABRAFENIB [Suspect]
     Active Substance: DABRAFENIB
     Indication: MALIGNANT MELANOMA
     Dosage: 300 MG, BID
     Route: 048
     Dates: start: 20120130
  4. MARCAINE [Concomitant]
     Active Substance: BUPIVACAINE HYDROCHLORIDE
     Indication: PRODUCT USED FOR UNKNOWN INDICATION
     Dosage: 20 ML, ONCE/SINGLE
     Route: 042
     Dates: start: 20140715, end: 20140715
  5. KEFLEX [Concomitant]
     Active Substance: CEPHALEXIN
     Indication: PRODUCT USED FOR UNKNOWN INDICATION
     Dosage: 500 MG, BID
     Route: 048
     Dates: start: 20161121, end: 20161128

REACTIONS (2)
  - Kaposi^s sarcoma [Recovered/Resolved]
  - Kaposi^s sarcoma [Recovered/Resolved]

NARRATIVE: CASE EVENT DATE: 20140616
